FAERS Safety Report 21066452 (Version 1)
Quarter: 2022Q3

REPORT INFORMATION
  Report Type: Spontaneous
  Country: JP (occurrence: JP)
  Receive Date: 20220711
  Receipt Date: 20220711
  Transmission Date: 20221027
  Serious: Yes (Hospitalization, Other)
  Sender: FDA-Public Use
  Company Number: JP-AMGEN-JPNSP2022115411

PATIENT
  Age: 84 Year
  Sex: Male

DRUGS (1)
  1. EVENITY [Suspect]
     Active Substance: ROMOSOZUMAB-AQQG
     Indication: Bone density decreased
     Dosage: 210 MILLIGRAM, QMO
     Route: 058

REACTIONS (2)
  - Lumbar vertebral fracture [Unknown]
  - Fractured sacrum [Unknown]

NARRATIVE: CASE EVENT DATE: 20220501
